FAERS Safety Report 22144667 (Version 2)
Quarter: 2023Q2

REPORT INFORMATION
  Report Type: Other
  Country: US (occurrence: None)
  Receive Date: 20230328
  Receipt Date: 20230417
  Transmission Date: 20230721
  Serious: Yes (Hospitalization, Other)
  Sender: FDA-Public Use
  Company Number: US-ROCHE-3312489

PATIENT
  Age: 56 Year
  Sex: Female

DRUGS (2)
  1. OCREVUS [Suspect]
     Active Substance: OCRELIZUMAB
     Indication: Relapsing multiple sclerosis
     Dosage: INFUSION ;ONGOING: YES
     Route: 042
     Dates: start: 20220912
  2. OCREVUS [Suspect]
     Active Substance: OCRELIZUMAB
     Route: 042
     Dates: start: 202206

REACTIONS (6)
  - Kidney infection [Unknown]
  - Gastric disorder [Not Recovered/Not Resolved]
  - Abdominal pain upper [Unknown]
  - Vomiting [Unknown]
  - Urinary tract infection [Unknown]
  - Asthenia [Unknown]
